FAERS Safety Report 5057014-0 (Version None)
Quarter: 2006Q2

REPORT INFORMATION
  Report Type: 
  Country: None (occurrence: None)
  Receive Date: 20060622
  Receipt Date: 20060324
  Transmission Date: 20061013
  Serious: Yes (Life-Threatening, Hospitalization)
  Sender: FDA-Public Use
  Company Number: US-JNJFOC-20060306986

PATIENT
  Age: 43 Year
  Sex: Male

DRUGS (9)
  1. FENTANYL TRANSDERMAL SYSTEM [Suspect]
     Indication: POST-TRAUMATIC PAIN
     Dosage: 75 UG/HR, 1 IN 72 HOUR, TRANSDERMAL
     Route: 062
     Dates: start: 20060321, end: 20060322
  2. ATARAX [Concomitant]
  3. LYRICA (ANTIEPILEPTICS) [Concomitant]
  4. NICOTINE [Concomitant]
  5. THIAMINE (THIAMINE) [Concomitant]
  6. MULTIVITAMIN [Concomitant]
  7. AMBIEN [Concomitant]
  8. DILAUDID (HYDROMORPHONE HYDROCHLORIDE) SOLUTION FOR INJECTION [Concomitant]
  9. AMANTADINE HCL [Concomitant]

REACTIONS (3)
  - DRUG ABUSER [None]
  - INCORRECT ROUTE OF DRUG ADMINISTRATION [None]
  - RESPIRATORY ARREST [None]
